FAERS Safety Report 19882026 (Version 1)
Quarter: 2021Q3

REPORT INFORMATION
  Report Type: Spontaneous
  Country: CA (occurrence: CA)
  Receive Date: 20210924
  Receipt Date: 20210924
  Transmission Date: 20211014
  Serious: Yes (Other)
  Sender: FDA-Public Use
  Company Number: CA-TEVA-2021-CA-1956617

PATIENT
  Age: 39 Year
  Sex: Female

DRUGS (40)
  1. MORPHINE SULFATE. [Suspect]
     Active Substance: MORPHINE SULFATE
     Route: 065
  2. METHADONE [Suspect]
     Active Substance: METHADONE HYDROCHLORIDE
     Indication: WITHDRAWAL SYNDROME
     Route: 065
  3. METHADONE [Suspect]
     Active Substance: METHADONE HYDROCHLORIDE
     Route: 065
  4. LEVAMISOLE [Suspect]
     Active Substance: LEVAMISOLE
     Indication: MATERNAL USE OF ILLICIT DRUGS
     Route: 065
  5. NALOXONE [Suspect]
     Active Substance: NALOXONE
     Indication: OVERDOSE
     Route: 065
  6. MORPHINE SULFATE. [Suspect]
     Active Substance: MORPHINE SULFATE
     Route: 065
  7. MORPHINE SULFATE. [Suspect]
     Active Substance: MORPHINE SULFATE
     Route: 065
  8. HYDROMORPHONE [Suspect]
     Active Substance: HYDROMORPHONE
     Route: 065
  9. MORPHINE SULFATE. [Suspect]
     Active Substance: MORPHINE SULFATE
     Route: 065
  10. MORPHINE SULFATE. [Suspect]
     Active Substance: MORPHINE SULFATE
     Route: 065
  11. METHADONE [Suspect]
     Active Substance: METHADONE HYDROCHLORIDE
     Route: 065
  12. METHADONE [Suspect]
     Active Substance: METHADONE HYDROCHLORIDE
     Route: 065
  13. METHADONE [Suspect]
     Active Substance: METHADONE HYDROCHLORIDE
     Route: 065
  14. METHADONE [Suspect]
     Active Substance: METHADONE HYDROCHLORIDE
     Route: 065
  15. METHADONE [Suspect]
     Active Substance: METHADONE HYDROCHLORIDE
     Route: 065
  16. METHADONE [Suspect]
     Active Substance: METHADONE HYDROCHLORIDE
     Route: 065
  17. FENTANYL. [Suspect]
     Active Substance: FENTANYL
     Route: 042
  18. MORPHINE SULFATE. [Suspect]
     Active Substance: MORPHINE SULFATE
     Indication: WITHDRAWAL SYNDROME
     Route: 065
  19. MORPHINE SULFATE. [Suspect]
     Active Substance: MORPHINE SULFATE
     Route: 065
  20. MORPHINE SULFATE. [Suspect]
     Active Substance: MORPHINE SULFATE
     Route: 048
  21. MORPHINE SULFATE. [Suspect]
     Active Substance: MORPHINE SULFATE
     Route: 065
  22. MORPHINE SULFATE. [Suspect]
     Active Substance: MORPHINE SULFATE
     Route: 048
  23. MORPHINE SULFATE. [Suspect]
     Active Substance: MORPHINE SULFATE
     Route: 065
  24. FENTANYL. [Suspect]
     Active Substance: FENTANYL
     Indication: MATERNAL USE OF ILLICIT DRUGS
     Route: 042
  25. HYDROMORPHONE [Suspect]
     Active Substance: HYDROMORPHONE
     Indication: WITHDRAWAL SYNDROME
     Route: 065
  26. MORPHINE SULFATE. [Suspect]
     Active Substance: MORPHINE SULFATE
     Route: 048
  27. MORPHINE SULFATE. [Suspect]
     Active Substance: MORPHINE SULFATE
     Route: 065
  28. METHADONE [Suspect]
     Active Substance: METHADONE HYDROCHLORIDE
     Route: 065
  29. COCAINE [Suspect]
     Active Substance: COCAINE
     Indication: MATERNAL USE OF ILLICIT DRUGS
     Route: 065
  30. MORPHINE SULFATE. [Suspect]
     Active Substance: MORPHINE SULFATE
     Indication: WITHDRAWAL SYNDROME
     Route: 048
  31. MORPHINE SULFATE. [Suspect]
     Active Substance: MORPHINE SULFATE
     Route: 065
  32. METHADONE [Suspect]
     Active Substance: METHADONE HYDROCHLORIDE
     Route: 065
  33. MORPHINE SULFATE. [Suspect]
     Active Substance: MORPHINE SULFATE
     Route: 065
  34. MORPHINE SULFATE. [Suspect]
     Active Substance: MORPHINE SULFATE
     Route: 065
  35. HYDROMORPHONE [Suspect]
     Active Substance: HYDROMORPHONE
     Indication: WITHDRAWAL SYNDROME
     Dosage: 150 MILLIGRAM DAILY;
     Route: 042
  36. MORPHINE SULFATE. [Suspect]
     Active Substance: MORPHINE SULFATE
     Route: 048
  37. METHADONE [Suspect]
     Active Substance: METHADONE HYDROCHLORIDE
     Route: 065
  38. METHADONE [Suspect]
     Active Substance: METHADONE HYDROCHLORIDE
     Route: 065
  39. MORPHINE SULFATE. [Suspect]
     Active Substance: MORPHINE SULFATE
     Route: 065
  40. FENTANYL. [Suspect]
     Active Substance: FENTANYL
     Route: 042

REACTIONS (6)
  - Electrocardiogram QT prolonged [Unknown]
  - Overdose [Unknown]
  - Maternal exposure during pregnancy [Unknown]
  - Drug withdrawal syndrome [Unknown]
  - Drug ineffective [Unknown]
  - Product use in unapproved indication [Unknown]
